FAERS Safety Report 4417582-6 (Version None)
Quarter: 2004Q3

REPORT INFORMATION
  Report Type: 
  Country: None (occurrence: None)
  Receive Date: 20040803
  Receipt Date: 20040727
  Transmission Date: 20050211
  Serious: Yes (Hospitalization)
  Sender: FDA-Public Use
  Company Number: DEWYE933228JUL04

PATIENT
  Sex: Male

DRUGS (2)
  1. SIROLIMUS (SIROLIMUS, SOLUTION, 0) [Suspect]
     Indication: PROPHYLAXIS AGAINST TRANSPLANT REJECTION
     Dosage: 2.5 MG
     Dates: start: 20020527
  2. METHYLPREDNISOLONE [Concomitant]

REACTIONS (1)
  - ARRHYTHMIA [None]
